FAERS Safety Report 13293421 (Version 1)
Quarter: 2017Q1

REPORT INFORMATION
  Report Type: Report from Study
  Country: US (occurrence: US)
  Receive Date: 20170303
  Receipt Date: 20170303
  Transmission Date: 20170428
  Serious: Yes (Hospitalization, Other)
  Sender: FDA-Public Use
  Company Number: US-MYLANLABS-2017M1013297

PATIENT

DRUGS (2)
  1. TOPOTECAN [Suspect]
     Active Substance: TOPOTECAN HYDROCHLORIDE
     Indication: RECURRENT CANCER
     Dosage: 3.5MG/ME2, ON DAY 1 AND THEN WEEKLY FOR 3 WEEKS
     Route: 065
  2. DOCETAXEL. [Suspect]
     Active Substance: DOCETAXEL
     Indication: RECURRENT CANCER
     Dosage: 30MG/ME2, ON DAY 1 AND THEN WEEKLY FOR 3 WEEKS
     Route: 065

REACTIONS (2)
  - Deep vein thrombosis [Unknown]
  - Cellulitis [Unknown]
